FAERS Safety Report 9732938 (Version 1)
Quarter: 2013Q4

REPORT INFORMATION
  Report Type: Spontaneous
  Country: US (occurrence: US)
  Receive Date: 20131204
  Receipt Date: 20131204
  Transmission Date: 20140711
  Serious: No
  Sender: FDA-Public Use
  Company Number: US-ENDO PHARMACEUTICALS INC.-ZOLP20120062

PATIENT
  Age: 41 Year
  Sex: Male

DRUGS (2)
  1. ZOLPIDEM TARTRATE TABLETS 10MG [Suspect]
     Indication: INSOMNIA
     Dosage: 10 MG
     Route: 048
     Dates: start: 2010, end: 20120706
  2. AMBIEN [Suspect]
     Indication: INSOMNIA
     Dosage: 6.25 MG
     Route: 048
     Dates: start: 20120518, end: 20120706

REACTIONS (4)
  - Arrhythmia [Unknown]
  - Sleep disorder [Unknown]
  - Panic attack [Unknown]
  - Drug effect decreased [Unknown]
